FAERS Safety Report 20674452 (Version 3)
Quarter: 2023Q1

REPORT INFORMATION
  Report Type: Spontaneous
  Country: US (occurrence: US)
  Receive Date: 20220405
  Receipt Date: 20230323
  Transmission Date: 20230417
  Serious: No
  Sender: FDA-Public Use
  Company Number: US-PFIZER INC-202200151221

PATIENT
  Age: 60 Year
  Sex: Female

DRUGS (1)
  1. XELJANZ XR [Suspect]
     Active Substance: TOFACITINIB CITRATE
     Dosage: 11 MG
     Dates: start: 202112

REACTIONS (6)
  - Tooth extraction [Unknown]
  - Pain [Recovering/Resolving]
  - Rash [Unknown]
  - Erythema [Unknown]
  - Pruritus [Unknown]
  - Alcohol abuse [Recovering/Resolving]
